FAERS Safety Report 7640097-9 (Version None)
Quarter: 2011Q3

REPORT INFORMATION
  Report Type: 
  Country: None (occurrence: None)
  Receive Date: 20110727
  Receipt Date: 20110719
  Transmission Date: 20111222
  Serious: Yes (Hospitalization)
  Sender: FDA-Public Use
  Company Number: UA-BRISTOL-MYERS SQUIBB COMPANY-15911514

PATIENT
  Age: 63 Year
  Sex: Male
  Weight: 113 kg

DRUGS (2)
  1. GLICLAZIDE [Suspect]
     Indication: TYPE 2 DIABETES MELLITUS
     Dosage: SUSPECT:GLICLAZIDE MR.
  2. METFORMIN HCL [Suspect]
     Indication: TYPE 2 DIABETES MELLITUS
     Dosage: INCREASED TO 2000MG,AGAIN REDUCED TO 1500MG

REACTIONS (9)
  - DIABETES MELLITUS [None]
  - DIABETIC RETINOPATHY [None]
  - PERSONALITY DISORDER [None]
  - HYPERTENSION [None]
  - HEPATIC STEATOSIS [None]
  - HYPERTENSIVE ENCEPHALOPATHY [None]
  - DIABETIC NEUROPATHY [None]
  - ARTERIOSCLEROSIS CORONARY ARTERY [None]
  - DIABETIC ENCEPHALOPATHY [None]
